FAERS Safety Report 9111277 (Version 1)
Quarter: 2013Q1

REPORT INFORMATION
  Report Type: Spontaneous
  Country: US (occurrence: US)
  Receive Date: 20130219
  Receipt Date: 20130219
  Transmission Date: 20140127
  Serious: No
  Sender: FDA-Public Use
  Company Number: US-BRISTOL-MYERS SQUIBB COMPANY-16607392

PATIENT
  Sex: Female

DRUGS (3)
  1. ORENCIA [Suspect]
     Dosage: NO OF INF 3, RECENT INF 17MAY12
  2. METHOTREXATE [Suspect]
     Indication: ARTHRITIS
  3. TYLENOL [Concomitant]
     Indication: ARTHRITIS

REACTIONS (1)
  - Herpes zoster [Unknown]
